FAERS Safety Report 21383933 (Version 3)
Quarter: 2022Q4

REPORT INFORMATION
  Report Type: Report from Study
  Country: US (occurrence: US)
  Receive Date: 20220928
  Receipt Date: 20221122
  Transmission Date: 20230112
  Serious: Yes (Other)
  Sender: FDA-Public Use
  Company Number: US-ABBVIE-22K-163-4516994-00

PATIENT
  Age: 78 Year
  Sex: Female

DRUGS (9)
  1. HUMIRA [Suspect]
     Active Substance: ADALIMUMAB
     Indication: Rheumatoid arthritis
     Dosage: CITRATE FREE, FORM STRENGTH:40 MG
     Route: 058
  2. HUMIRA [Suspect]
     Active Substance: ADALIMUMAB
     Indication: Uveitis
     Dosage: CITRATE FREE, FORM STRENGTH:40 MG
     Route: 058
  3. MODERNA COVID-19 VACCINE [Concomitant]
     Active Substance: ELASOMERAN
     Indication: COVID-19 immunisation
     Dosage: 1 IN ONCE FIRST DOSE
     Route: 030
     Dates: start: 20210205, end: 20210205
  4. MODERNA COVID-19 VACCINE [Concomitant]
     Active Substance: ELASOMERAN
     Indication: COVID-19 immunisation
     Dosage: 1 IN ONCE SECOND DOSE
     Route: 030
     Dates: start: 20210405, end: 20210405
  5. MODERNA COVID-19 VACCINE [Concomitant]
     Active Substance: ELASOMERAN
     Indication: COVID-19 immunisation
     Dosage: 1 IN ONCE THIRD DOSE
     Route: 030
     Dates: start: 20210820, end: 20210820
  6. CYCLOSPORINE [Concomitant]
     Active Substance: CYCLOSPORINE
     Indication: Product used for unknown indication
     Dosage: 2  DAY
  7. VALACYCLOVIR [Concomitant]
     Active Substance: VALACYCLOVIR HYDROCHLORIDE
     Indication: Product used for unknown indication
     Dosage: 1 DAY
  8. PREDNISONE [Concomitant]
     Active Substance: PREDNISONE
     Indication: Product used for unknown indication
     Dosage: 1DAY
  9. ATORVASTATIN [Concomitant]
     Active Substance: ATORVASTATIN
     Indication: Product used for unknown indication
     Dosage: 1DAY

REACTIONS (6)
  - Cataract [Unknown]
  - COVID-19 [Recovered/Resolved]
  - Skin atrophy [Unknown]
  - Surgery [Unknown]
  - Hair growth abnormal [Unknown]
  - Weight increased [Recovering/Resolving]

NARRATIVE: CASE EVENT DATE: 20220622
